FAERS Safety Report 15147086 (Version 1)
Quarter: 2018Q3

REPORT INFORMATION
  Report Type: Report from Study
  Country: None (occurrence: US)
  Receive Date: 20180716
  Receipt Date: 20180716
  Transmission Date: 20181010
  Serious: Yes (Hospitalization)
  Sender: FDA-Public Use
  Company Number: US-ABBVIE-18K-163-2419568-00

PATIENT
  Age: 54 Year
  Sex: Female

DRUGS (1)
  1. HUMIRA [Suspect]
     Active Substance: ADALIMUMAB
     Indication: UVEITIS
     Route: 058

REACTIONS (6)
  - Constipation [Unknown]
  - Renal impairment [Unknown]
  - Gastroenteritis viral [Recovering/Resolving]
  - Dehydration [Unknown]
  - Blood potassium decreased [Unknown]
  - Headache [Unknown]

NARRATIVE: CASE EVENT DATE: 2018
